FAERS Safety Report 4548234-X (Version None)
Quarter: 2004Q4

REPORT INFORMATION
  Report Type: 
  Country: None (occurrence: None)
  Receive Date: 20041220
  Receipt Date: 20040205
  Transmission Date: 20050328
  Serious: Yes (Hospitalization)
  Sender: FDA-Public Use
  Company Number: US_981012484

PATIENT
  Age: 35 Year
  Sex: Male
  Weight: 73 kg

DRUGS (3)
  1. HUMALOG [Suspect]
     Indication: DIABETES MELLITUS
     Dosage: 18 U/1 DAY
     Dates: start: 19960101
  2. HUMULIN N [Suspect]
     Indication: DIABETES MELLITUS
     Dates: end: 19960101
  3. HUMULIN HUMAN REGULAR INSUILIN (RDNA) (HUMAN INSULIN [Suspect]
     Indication: DIABETES MELLITUS
     Dates: end: 19960101

REACTIONS (4)
  - BLOOD GLUCOSE DECREASED [None]
  - GASTROENTERITIS [None]
  - HYPOGLYCAEMIA [None]
  - INJECTION SITE ERYTHEMA [None]
